FAERS Safety Report 9138717 (Version 1)
Quarter: 2013Q1

REPORT INFORMATION
  Report Type: Spontaneous
  Country: US (occurrence: US)
  Receive Date: 20130305
  Receipt Date: 20130305
  Transmission Date: 20140127
  Serious: No
  Sender: FDA-Public Use
  Company Number: US-BIOGENIDEC-2013BI019285

PATIENT
  Sex: Female

DRUGS (1)
  1. AVONEX [Suspect]
     Indication: MULTIPLE SCLEROSIS
     Route: 030
     Dates: start: 20121227

REACTIONS (5)
  - Hypoaesthesia [Unknown]
  - Dermatitis acneiform [Unknown]
  - Paraesthesia [Unknown]
  - Dizziness [Unknown]
  - Pain [Unknown]
